FAERS Safety Report 7699599-1 (Version None)
Quarter: 2011Q3

REPORT INFORMATION
  Report Type: 
  Country: None (occurrence: None)
  Receive Date: 20110822
  Receipt Date: 20110815
  Transmission Date: 20111222
  Serious: Yes (Hospitalization)
  Sender: FDA-Public Use
  Company Number: US-BIOGENIDEC-2011BI028298

PATIENT
  Age: 56 Year
  Sex: Female

DRUGS (2)
  1. AVONEX [Suspect]
     Indication: MULTIPLE SCLEROSIS
     Route: 030
     Dates: start: 20090520
  2. AVONEX [Suspect]
     Route: 030
     Dates: start: 20000601, end: 20021001

REACTIONS (3)
  - FALL [None]
  - ASTHENIA [None]
  - ABASIA [None]
